FAERS Safety Report 9270009 (Version 2)
Quarter: 2013Q2

REPORT INFORMATION
  Report Type: Spontaneous
  Country: US (occurrence: US)
  Receive Date: 20130502
  Receipt Date: 20130530
  Transmission Date: 20140414
  Serious: Yes (Other)
  Sender: FDA-Public Use
  Company Number: US-RB-053052-13

PATIENT
  Sex: Male

DRUGS (4)
  1. SUBOXONE UNSPECIFIED [Suspect]
     Indication: MIGRAINE
     Dosage: DOSING DETAILS UNKNOWN
     Route: 064
     Dates: start: 201203, end: 20120613
  2. SUBUTEX [Suspect]
     Indication: MIGRAINE
     Route: 064
     Dates: start: 20120613, end: 20121206
  3. ZOFRAN [Suspect]
     Indication: NAUSEA
     Route: 064
     Dates: start: 201206, end: 20121206
  4. ZOFRAN [Suspect]
     Indication: VOMITING
     Route: 064
     Dates: start: 201206, end: 20121206

REACTIONS (4)
  - Convulsion neonatal [Unknown]
  - Electroencephalogram abnormal [Unknown]
  - Respiratory syncytial virus infection [Unknown]
  - Foetal exposure during pregnancy [Recovered/Resolved]
